FAERS Safety Report 20026166 (Version 1)
Quarter: 2021Q4

REPORT INFORMATION
  Report Type: Spontaneous
  Country: TR (occurrence: TR)
  Receive Date: 20211102
  Receipt Date: 20211102
  Transmission Date: 20220303
  Serious: Yes (Hospitalization, Other)
  Sender: FDA-Public Use
  Company Number: TR-BoehringerIngelheim-2021-BI-135809

PATIENT

DRUGS (2)
  1. OFEV [Suspect]
     Active Substance: NINTEDANIB
     Indication: Idiopathic pulmonary fibrosis
     Route: 065
     Dates: start: 201904
  2. OFEV [Suspect]
     Active Substance: NINTEDANIB
     Dates: start: 202010

REACTIONS (5)
  - Idiopathic pulmonary fibrosis [Unknown]
  - Pneumothorax [Unknown]
  - Cough [Unknown]
  - Dyspnoea exertional [Unknown]
  - Diarrhoea [Recovered/Resolved]

NARRATIVE: CASE EVENT DATE: 20200101
